FAERS Safety Report 6057116-6 (Version None)
Quarter: 2009Q1

REPORT INFORMATION
  Report Type: 
  Country: None (occurrence: None)
  Receive Date: 20090126
  Receipt Date: 20090126
  Transmission Date: 20090719
  Serious: Yes (Death)
  Sender: FDA-Public Use
  Company Number: None

PATIENT
  Age: 21 Year
  Sex: Male
  Weight: 70.3075 kg

DRUGS (5)
  1. SINGULAIR [Suspect]
     Indication: ASTHMA
     Dates: start: 19980101, end: 20041024
  2. SINGULAIR [Suspect]
     Indication: MULTIPLE ALLERGIES
     Dates: start: 19980101, end: 20041024
  3. PROVENTIL [Concomitant]
  4. INTAL INHLAERS [Concomitant]
  5. FLONASE [Concomitant]

REACTIONS (4)
  - ANXIETY [None]
  - COMPLETED SUICIDE [None]
  - DEPRESSION [None]
  - MOOD ALTERED [None]
